FAERS Safety Report 18942456 (Version 1)
Quarter: 2021Q1

REPORT INFORMATION
  Report Type: Report from Study
  Country: CN (occurrence: CN)
  Receive Date: 20210225
  Receipt Date: 20210225
  Transmission Date: 20210420
  Serious: Yes (Hospitalization, Other)
  Sender: FDA-Public Use
  Company Number: CN-PFIZER INC-2021195320

PATIENT
  Age: 64 Year
  Sex: Male

DRUGS (12)
  1. LACTULOSE. [Concomitant]
     Active Substance: LACTULOSE
     Indication: CONSTIPATION
     Dosage: 15 ML, 3X/DAY
     Route: 048
     Dates: start: 20181109
  2. PACLITAXEL. [Suspect]
     Active Substance: PACLITAXEL
     Dosage: 253 MG, ONCE
     Route: 042
     Dates: start: 20181201, end: 20181201
  3. PACLITAXEL. [Suspect]
     Active Substance: PACLITAXEL
     Dosage: 251 MG, ONCE
     Route: 042
     Dates: start: 20190104, end: 20190104
  4. IMFERDEX [Concomitant]
     Indication: ANALGESIC THERAPY
     Dosage: 1 G, 2X/DAY (Q12H)
     Route: 048
     Dates: start: 20180929
  5. OXYCODONE HYDROCHLORIDE. [Concomitant]
     Active Substance: OXYCODONE HYDROCHLORIDE
     Indication: ANALGESIC THERAPY
     Dosage: 10 MG, 2X/DAY (Q12H)
     Route: 048
     Dates: start: 20181008
  6. CARBOPLATIN. [Suspect]
     Active Substance: CARBOPLATIN
     Dosage: 550 MG, ONCE
     Route: 042
     Dates: start: 20181201, end: 20181201
  7. PACLITAXEL. [Suspect]
     Active Substance: PACLITAXEL
     Indication: NON-SMALL CELL LUNG CANCER
     Dosage: 258 MG, ONCE
     Route: 042
     Dates: start: 20181018, end: 20181018
  8. PACLITAXEL. [Suspect]
     Active Substance: PACLITAXEL
     Dosage: 253 MG, ONCE
     Route: 042
     Dates: start: 20181109, end: 20181109
  9. GRANISETRON HYDROCHLORIDE. [Concomitant]
     Active Substance: GRANISETRON HYDROCHLORIDE
     Indication: NAUSEA
     Dosage: 1 MG, DAILY
     Route: 048
     Dates: start: 20181202, end: 20181209
  10. CARBOPLATIN. [Suspect]
     Active Substance: CARBOPLATIN
     Indication: NON-SMALL CELL LUNG CANCER
     Dosage: 551.7 MG, ONCE
     Route: 042
     Dates: start: 20181018, end: 20181018
  11. CARBOPLATIN. [Suspect]
     Active Substance: CARBOPLATIN
     Dosage: 514.5 MG, ONCE
     Route: 042
     Dates: start: 20181109, end: 20181109
  12. CARBOPLATIN. [Suspect]
     Active Substance: CARBOPLATIN
     Dosage: 592.4 MG, ONCE
     Route: 042
     Dates: start: 20190104, end: 20190104

REACTIONS (3)
  - Myelosuppression [Recovered/Resolved]
  - Anal fissure [Recovered/Resolved]
  - Anal abscess [Recovered/Resolved]

NARRATIVE: CASE EVENT DATE: 20181220
